FAERS Safety Report 5690227-3 (Version None)
Quarter: 2008Q2

REPORT INFORMATION
  Report Type: 
  Country: None (occurrence: None)
  Receive Date: 20080401
  Receipt Date: 20080324
  Transmission Date: 20081010
  Serious: Yes (Hospitalization)
  Sender: FDA-Public Use
  Company Number: US-ROCHE-499810

PATIENT
  Age: 56 Year
  Sex: Female
  Weight: 83.6 kg

DRUGS (11)
  1. PEGASYS [Suspect]
     Indication: HEPATITIS C
     Route: 058
     Dates: start: 20070502, end: 20070516
  2. RIBAVIRIN [Suspect]
     Indication: HEPATITIS C
     Route: 048
     Dates: start: 20070502, end: 20070519
  3. PLACEBO [Suspect]
     Indication: HEPATITIS C
     Route: 048
     Dates: start: 20070502, end: 20070519
  4. COZAAR [Concomitant]
     Indication: HYPERTENSION
     Route: 048
     Dates: start: 19900101
  5. PROCARDIA [Concomitant]
     Indication: HYPERTENSION
     Route: 048
     Dates: start: 20050101
  6. ATENOLOL [Concomitant]
     Indication: HYPERTENSION
     Route: 048
     Dates: start: 20050101
  7. POTASSIUM CHLORIDE [Concomitant]
     Indication: HYPERTENSION
     Route: 048
     Dates: start: 20040101
  8. CENTRUM SILVER [Concomitant]
     Indication: VITAMIN SUPPLEMENTATION
     Route: 048
     Dates: start: 20040101
  9. ACETYLSALICYLIC ACID SRT [Concomitant]
     Indication: HYPERTENSION
     Dosage: GENERIC NAME REPORTED AS ACETYLSALICYLIC ACID.
     Route: 048
     Dates: start: 19900101
  10. ALEVE [Concomitant]
     Indication: ARTHRITIS
     Route: 048
     Dates: start: 20070319
  11. TRIAMTERENE [Concomitant]
     Indication: HYPERTENSION
     Route: 048
     Dates: start: 20070319

REACTIONS (2)
  - ANAEMIA [None]
  - RENAL FAILURE ACUTE [None]
